FAERS Safety Report 12077659 (Version 3)
Quarter: 2016Q2

REPORT INFORMATION
  Report Type: Report from Study
  Country: DE (occurrence: DE)
  Receive Date: 20160215
  Receipt Date: 20160429
  Transmission Date: 20160815
  Serious: Yes (Hospitalization)
  Sender: FDA-Public Use
  Company Number: DE-TAKEDA-2016TUS002222

PATIENT
  Sex: Male
  Weight: 92 kg

DRUGS (8)
  1. PREDNISOLONE. [Concomitant]
     Active Substance: PREDNISOLONE
     Dosage: 30 MG, UNK
  2. PREDNISOLONE. [Concomitant]
     Active Substance: PREDNISOLONE
     Dosage: 40 MG, QD
     Dates: start: 20150201, end: 20150201
  3. VEDOLIZUMAB [Suspect]
     Active Substance: VEDOLIZUMAB
     Indication: COLITIS ULCERATIVE
     Dosage: 300 MG, UNK
     Route: 065
     Dates: start: 20151001
  4. MARCUMAR [Concomitant]
     Active Substance: PHENPROCOUMON
     Indication: HAEMODILUTION
     Dosage: UNK
  5. MEZAVANT [Concomitant]
     Active Substance: MESALAMINE
     Indication: COLITIS ULCERATIVE
     Dosage: 2.4 G, QD
  6. CLEXANE [Concomitant]
     Active Substance: ENOXAPARIN SODIUM
     Dosage: UNK, QD
     Route: 058
  7. IDEOS [Concomitant]
     Active Substance: CALCIUM CARBONATE\CHOLECALCIFEROL
     Indication: VITAMIN SUPPLEMENTATION
     Dosage: 2 IU, QD
  8. CORTIMENT MMX                          /00614601/ [Concomitant]
     Indication: COLITIS ULCERATIVE
     Dosage: 9 MG, QD

REACTIONS (5)
  - Colitis ulcerative [Recovered/Resolved]
  - Pain in extremity [Recovered/Resolved]
  - Diarrhoea [Recovered/Resolved]
  - Night sweats [Recovered/Resolved]
  - Diarrhoea haemorrhagic [Recovered/Resolved]

NARRATIVE: CASE EVENT DATE: 2009
